FAERS Safety Report 4583347-8 (Version None)
Quarter: 2005Q1

REPORT INFORMATION
  Report Type: 
  Country: None (occurrence: None)
  Receive Date: 20050125
  Receipt Date: 20040908
  Transmission Date: 20050727
  Serious: No
  Sender: FDA-Public Use
  Company Number: USA031253782

PATIENT
  Age: 79 Year
  Sex: Female

DRUGS (4)
  1. FORTEO [Suspect]
     Indication: OSTEOPOROSIS
     Dosage: 20 UG DAY
     Dates: start: 20031101
  2. FOSAMAX [Concomitant]
  3. CALCIUM GLUCONATE [Concomitant]
  4. VITAMINS [Concomitant]

REACTIONS (3)
  - ARTHRALGIA [None]
  - BLOOD CALCIUM INCREASED [None]
  - PAIN IN EXTREMITY [None]
